FAERS Safety Report 4677497-5 (Version None)
Quarter: 2005Q2

REPORT INFORMATION
  Report Type: 
  Country: None (occurrence: None)
  Receive Date: 20050527
  Receipt Date: 20050527
  Transmission Date: 20051028
  Serious: Yes (Life-Threatening, Hospitalization, Disabling)
  Sender: FDA-Public Use
  Company Number: None

PATIENT
  Age: 50 Year
  Sex: Male
  Weight: 113.3993 kg

DRUGS (2)
  1. NITROTAB   1/150 GR   ABLE LABORATIRIES INC [Suspect]
     Indication: CORONARY ARTERY DISEASE
     Dosage: PRN  PRN  SUBLINGUAL
     Route: 060
     Dates: start: 20000826, end: 20050525
  2. NITROTAB   1/150 GR   ABLE LABORATIRIES INC [Suspect]
     Indication: MYOCARDIAL INFARCTION
     Dosage: PRN  PRN  SUBLINGUAL
     Route: 060
     Dates: start: 20000826, end: 20050525

REACTIONS (5)
  - CHEST PAIN [None]
  - DRUG INEFFECTIVE [None]
  - MEDICATION ERROR [None]
  - MYOCARDIAL INFARCTION [None]
  - PHARMACEUTICAL PRODUCT COMPLAINT [None]
